FAERS Safety Report 5844490-6 (Version None)
Quarter: 2008Q3

REPORT INFORMATION
  Report Type: 
  Country: None (occurrence: None)
  Receive Date: 20080811
  Receipt Date: 20080729
  Transmission Date: 20090109
  Serious: Yes (Life-Threatening, Hospitalization)
  Sender: FDA-Public Use
  Company Number: DSA_31883_2008

PATIENT
  Sex: Female

DRUGS (3)
  1. TEMESTA /0027301/ (TEMESTA - LORAZEPAM) (NOT SPECIFIED) [Suspect]
     Indication: DRUG USE FOR UNKNOWN INDICATION
     Dosage: 2.5 MG, QD, SUBLINGUAL
     Route: 060
     Dates: start: 20080111, end: 20080111
  2. ZYPREXA [Suspect]
     Indication: DRUG USE FOR UNKNOWN INDICATION
     Dosage: 10 MG QD, ORAL
     Route: 048
     Dates: start: 20080111, end: 20080111
  3. ABILIFY [Concomitant]

REACTIONS (7)
  - BLOOD PRESSURE DIASTOLIC DECREASED [None]
  - BLOOD PRESSURE FLUCTUATION [None]
  - DEPRESSED LEVEL OF CONSCIOUSNESS [None]
  - FALL [None]
  - HEART RATE ABNORMAL [None]
  - PUPILLARY REFLEX IMPAIRED [None]
  - WOUND [None]
